FAERS Safety Report 21798615 (Version 1)
Quarter: 2022Q4

REPORT INFORMATION
  Report Type: Report from Study
  Country: US (occurrence: US)
  Receive Date: 20221230
  Receipt Date: 20221230
  Transmission Date: 20230112
  Serious: No
  Sender: FDA-Public Use
  Company Number: US-ABBVIE-4208828

PATIENT
  Sex: Female

DRUGS (4)
  1. SKYRIZI [Suspect]
     Active Substance: RISANKIZUMAB-RZAA
     Indication: Psoriasis
     Route: 058
  2. LEVOTHYROXINE 88 MCG CAPSULE [Concomitant]
     Indication: Product used for unknown indication
     Route: 065
  3. GLIPIZUE 10 MG TABLET [Concomitant]
     Indication: Product used for unknown indication
     Route: 065
  4. ROSUVASTATIN CALCIUM 10 MG TABLET [Concomitant]
     Indication: Product used for unknown indication
     Route: 065

REACTIONS (1)
  - Psoriasis [Unknown]
